FAERS Safety Report 6183627-9 (Version None)
Quarter: 2009Q2

REPORT INFORMATION
  Report Type: 
  Country: None (occurrence: None)
  Receive Date: 20090508
  Receipt Date: 20090504
  Transmission Date: 20091009
  Serious: Yes (Other)
  Sender: FDA-Public Use
  Company Number: US-JNJFOC-20090405308

PATIENT
  Sex: Female

DRUGS (3)
  1. PEPCID AC [Suspect]
     Route: 048
  2. PEPCID AC [Suspect]
     Indication: DRUG USE FOR UNKNOWN INDICATION
     Route: 048
  3. ANTIDEPRESSANTS [Interacting]
     Indication: DEPRESSION

REACTIONS (2)
  - DEPRESSION [None]
  - DRUG INTERACTION [None]
